FAERS Safety Report 6016719-5 (Version None)
Quarter: 2008Q4

REPORT INFORMATION
  Report Type: 
  Country: None (occurrence: None)
  Receive Date: 20081222
  Receipt Date: 20081209
  Transmission Date: 20090506
  Serious: No
  Sender: FDA-Public Use
  Company Number: US-B.I. PHARMACEUTICALS,INC./RIDGEFIELD-2008-BP-17081BP

PATIENT
  Sex: Female

DRUGS (4)
  1. COMBIVENT [Suspect]
     Indication: ASTHMA
     Dosage: 8PUF
     Route: 055
     Dates: start: 19980101
  2. SEROQUEL [Concomitant]
  3. NEURONTIN [Concomitant]
  4. XANAX [Concomitant]

REACTIONS (3)
  - DRUG INEFFECTIVE [None]
  - OROPHARYNGEAL PAIN [None]
  - THROAT IRRITATION [None]
